FAERS Safety Report 7854734-7 (Version None)
Quarter: 2011Q4

REPORT INFORMATION
  Report Type: 
  Country: None (occurrence: None)
  Receive Date: 20111026
  Receipt Date: 20110809
  Transmission Date: 20120403
  Serious: No
  Sender: FDA-Public Use
  Company Number: US-MUTUAL PHARMACEUTICAL COMPANY, INC.-CLCY20110101

PATIENT
  Age: 63 Year
  Sex: Female

DRUGS (1)
  1. COLCRYS [Suspect]
     Indication: CALCINOSIS
     Route: 065
     Dates: end: 20110501

REACTIONS (2)
  - OFF LABEL USE [None]
  - LEUKOPENIA [None]
